FAERS Safety Report 23247711 (Version 1)
Quarter: 2023Q4

REPORT INFORMATION
  Report Type: Spontaneous
  Country: US (occurrence: None)
  Receive Date: 20231130
  Receipt Date: 20231130
  Transmission Date: 20240110
  Serious: No
  Sender: FDA-Public Use
  Company Number: None

PATIENT
  Sex: Female

DRUGS (32)
  1. TOBRAMYCIN [Suspect]
     Active Substance: TOBRAMYCIN
     Indication: Lung transplant
     Dosage: 300 MG/5ML INHALATION??INHALE 300 MG VIA NEBULIZER EVERY 12 HOURS FOR 28 DAYS ON / 28 DAYS OFF
     Dates: start: 20220519
  2. ADMELOG INJ [Concomitant]
  3. ALBUTEROL AER HFA [Concomitant]
  4. ANORO ELLIPT AER [Concomitant]
  5. ASPIRIN TAB EC [Concomitant]
  6. D3-50 CAP 5000UNT [Concomitant]
  7. ERYTHROMYCIN OIN [Concomitant]
  8. FEROSUL TAB [Concomitant]
  9. FLOVENT DISK AER [Concomitant]
  10. FUROSEMIDE TAB [Concomitant]
  11. FUROSEMIDE TAB 40MG [Concomitant]
  12. incruse elpt inh [Concomitant]
  13. IPRATROPIUM/SOL ALBUTER [Concomitant]
  14. MAG OXIDE TAB [Concomitant]
  15. MONTELUKAST TAB [Concomitant]
  16. MYCOPHENOLAT CAP [Concomitant]
  17. NEO POLY/DEX SUS 0.1% OP [Concomitant]
  18. PANTOPRAZOLE TAB 40MG [Concomitant]
  19. POT CHLORIDE TAB 20MEQ ER [Concomitant]
  20. PRAVASTATIN TAB 20MG [Concomitant]
  21. PRAVASTATIN TAB 40MG [Concomitant]
  22. PREDNISOLONE SUS 1% OP [Concomitant]
  23. PREDNISONE TAB 10MG [Concomitant]
  24. PREGABALIN CAP 100MG [Concomitant]
  25. RISA-BID TAB PROBIO [Concomitant]
  26. TACROLIMUS [Concomitant]
     Active Substance: TACROLIMUS
  27. TACROLIMUS CAP 1MG [Concomitant]
  28. TRIFLURIDINE SOL 1%OP [Concomitant]
  29. VALACYCLOVIR [Concomitant]
     Active Substance: VALACYCLOVIR HYDROCHLORIDE
  30. VALGANCICLOVIR HYDROCHLORIDE [Concomitant]
     Active Substance: VALGANCICLOVIR HYDROCHLORIDE
  31. VALGANCICLOVIR 450MG TAB [Concomitant]
  32. VORICONAZOLE TAB 200MG [Concomitant]

REACTIONS (1)
  - Respiratory syncytial virus infection [None]
